FAERS Safety Report 17577298 (Version 1)
Quarter: 2020Q1

REPORT INFORMATION
  Report Type: Spontaneous
  Country: US (occurrence: US)
  Receive Date: 20200324
  Receipt Date: 20200324
  Transmission Date: 20200409
  Serious: No
  Sender: FDA-Public Use
  Company Number: US-TOLMAR, INC.-20US020034

PATIENT

DRUGS (1)
  1. ELIGARD [Suspect]
     Active Substance: LEUPROLIDE ACETATE
     Indication: PRODUCT USED FOR UNKNOWN INDICATION
     Dosage: 30 MG
     Route: 065
     Dates: start: 20191210

REACTIONS (4)
  - Intercepted product preparation error [None]
  - Syringe issue [None]
  - Product physical consistency issue [None]
  - Wrong technique in product usage process [None]

NARRATIVE: CASE EVENT DATE: 20191210
